FAERS Safety Report 13879826 (Version 1)
Quarter: 2017Q3

REPORT INFORMATION
  Report Type: Spontaneous
  Country: US (occurrence: US)
  Receive Date: 20170818
  Receipt Date: 20170818
  Transmission Date: 20171127
  Serious: Yes (Other)
  Sender: FDA-Public Use
  Company Number: US-GLAXOSMITHKLINE-US2012000683

PATIENT

DRUGS (1)
  1. NICORETTE [Suspect]
     Active Substance: NICOTINE
     Indication: WEIGHT LOSS DIET
     Dosage: UNK

REACTIONS (9)
  - Energy increased [Unknown]
  - Product use in unapproved indication [Unknown]
  - Decreased appetite [Unknown]
  - Tooth disorder [Unknown]
  - Weight decreased [Unknown]
  - Drug effective for unapproved indication [Unknown]
  - Suicidal ideation [Unknown]
  - Nicotine dependence [Unknown]
  - Sleep disorder [Unknown]
